FAERS Safety Report 12747798 (Version 2)
Quarter: 2016Q4

REPORT INFORMATION
  Report Type: Report from Study
  Country: US (occurrence: US)
  Receive Date: 20160915
  Receipt Date: 20161123
  Transmission Date: 20170207
  Serious: Yes (Other)
  Sender: FDA-Public Use
  Company Number: US-GILEAD-2016-0233368

PATIENT
  Age: 64 Year
  Sex: Male

DRUGS (1)
  1. RANOLAZINE [Suspect]
     Active Substance: RANOLAZINE
     Indication: ANGINA PECTORIS
     Dosage: 1000 MG, UNK
     Route: 048

REACTIONS (1)
  - Cataract [Not Recovered/Not Resolved]

NARRATIVE: CASE EVENT DATE: 201609
